FAERS Safety Report 17865274 (Version 1)
Quarter: 2020Q2

REPORT INFORMATION
  Report Type: Spontaneous
  Country: US (occurrence: US)
  Receive Date: 20200604
  Receipt Date: 20200604
  Transmission Date: 20200714
  Serious: Yes (Hospitalization)
  Sender: FDA-Public Use
  Company Number: None

PATIENT
  Age: 52 Year
  Sex: Female

DRUGS (12)
  1. GABAPENTIN. [Concomitant]
     Active Substance: GABAPENTIN
  2. HYDROCHLOROTHIAZIDE. [Concomitant]
     Active Substance: HYDROCHLOROTHIAZIDE
  3. FOLIC ACID. [Concomitant]
     Active Substance: FOLIC ACID
  4. HUMIRA [Suspect]
     Active Substance: ADALIMUMAB
     Indication: RHEUMATOID ARTHRITIS
     Route: 058
     Dates: start: 20190828
  5. NYSTATIN. [Concomitant]
     Active Substance: NYSTATIN
  6. HYDROCO/APAP [Concomitant]
     Active Substance: ACETAMINOPHEN\HYDROCODONE
  7. LOSARTAN. [Concomitant]
     Active Substance: LOSARTAN
  8. FLUTICASONE. [Concomitant]
     Active Substance: FLUTICASONE
  9. AMOXICILLIN. [Concomitant]
     Active Substance: AMOXICILLIN
  10. PREDNISONE. [Concomitant]
     Active Substance: PREDNISONE
  11. AMLODIPINE [Concomitant]
     Active Substance: AMLODIPINE BESYLATE
  12. TRELEGY ELLIPTA [Concomitant]
     Active Substance: FLUTICASONE FUROATE\UMECLIDINIUM BROMIDE\VILANTEROL TRIFENATATE

REACTIONS (3)
  - Therapy interrupted [None]
  - Oxygen saturation decreased [None]
  - Ear infection [None]

NARRATIVE: CASE EVENT DATE: 20200521
